FAERS Safety Report 19721133 (Version 2)
Quarter: 2022Q2

REPORT INFORMATION
  Report Type: Spontaneous
  Country: US (occurrence: US)
  Receive Date: 20210819
  Receipt Date: 20220418
  Transmission Date: 20220721
  Serious: No
  Sender: FDA-Public Use
  Company Number: US-PFIZER INC-2021600532

PATIENT
  Age: 61 Year
  Sex: Male
  Weight: 71.202 kg

DRUGS (2)
  1. INLYTA [Suspect]
     Active Substance: AXITINIB
     Indication: Renal cell carcinoma
     Dosage: 5 MG, 2X/DAY
     Route: 048
     Dates: start: 20210429
  2. INLYTA [Suspect]
     Active Substance: AXITINIB
     Indication: Neoplasm malignant

REACTIONS (6)
  - Disturbance in attention [Unknown]
  - Emotional disorder [Unknown]
  - Balance disorder [Unknown]
  - Somnolence [Unknown]
  - Lip blister [Unknown]
  - Diarrhoea [Unknown]

NARRATIVE: CASE EVENT DATE: 20210101
